FAERS Safety Report 24738540 (Version 3)
Quarter: 2025Q1

REPORT INFORMATION
  Report Type: Spontaneous
  Country: US (occurrence: US)
  Receive Date: 20241216
  Receipt Date: 20250113
  Transmission Date: 20250409
  Serious: Yes (Hospitalization, Other)
  Sender: PFIZER
  Company Number: US-BRISTOL-MYERS SQUIBB COMPANY-2024-190295

PATIENT
  Age: 78 Year
  Sex: Male
  Weight: 70.8 kg

DRUGS (8)
  1. ELIQUIS [Suspect]
     Active Substance: APIXABAN
     Indication: Anticoagulant therapy
     Dosage: TAKE 0.5 TABLETS (2.5MG) IN THE MORNING AND AT BEDTIME
     Route: 048
     Dates: start: 20191029
  2. VYNDAMAX [Suspect]
     Active Substance: TAFAMIDIS
     Indication: Cardiac amyloidosis
     Dosage: TAKE 61 MG IN THE MORNING, QUANTITY #30 CAPSULES (30 DAYS)
     Route: 048
     Dates: start: 20220503, end: 20241122
  3. VYNDAMAX [Suspect]
     Active Substance: TAFAMIDIS
     Dosage: ONE 61 MG TAFAMIDIS CAPSULE ORALLY ONCE DAILY
     Route: 048
  4. TAFAMIDIS [Suspect]
     Active Substance: TAFAMIDIS
     Indication: Cardiac amyloidosis
     Dosage: 61 MG, 1X/DAY
     Route: 048
     Dates: start: 201907
  5. ALDACTONE [Concomitant]
     Active Substance: SPIRONOLACTONE
     Dosage: TAKE 0.5 TABLETS (12.5 MG) BY MOUTH IN THE MORNING
     Route: 048
     Dates: start: 20230328
  6. ALDACTONE [Concomitant]
     Active Substance: SPIRONOLACTONE
     Dosage: TAKE 1 TABLET (25 MG) BY MOUTH 1 (ONE) TIME EACH DAY. TAKING 1 TAB DAILY)
     Route: 048
     Dates: end: 20241001
  7. CRESTOR [Concomitant]
     Active Substance: ROSUVASTATIN CALCIUM
     Dosage: TAKE 1 TABLET (10 MG) BY MOUTH 1 (ONE) TIME EACH DAY, - ORAL
     Route: 048
  8. AMIODARONE [Concomitant]
     Active Substance: AMIODARONE
     Indication: Sinus arrhythmia

REACTIONS (6)
  - Cardiac failure [Recovering/Resolving]
  - COVID-19 pneumonia [Unknown]
  - Pneumonia [Unknown]
  - Cardiac failure acute [Unknown]
  - Cardiac ablation [Unknown]
  - Off label use [Unknown]

NARRATIVE: CASE EVENT DATE: 20220510
